FAERS Safety Report 4814405-8 (Version None)
Quarter: 2005Q4

REPORT INFORMATION
  Report Type: 
  Country: None (occurrence: None)
  Receive Date: 20051028
  Receipt Date: 20050819
  Transmission Date: 20060501
  Serious: Yes (Disabling, Other)
  Sender: FDA-Public Use
  Company Number: US-GLAXOSMITHKLINE-A0570951A

PATIENT
  Age: 27 Year
  Sex: Female
  Weight: 163.2 kg

DRUGS (17)
  1. ADVAIR DISKUS 100/50 [Suspect]
     Indication: ASTHMA
     Route: 055
  2. NORVIR [Suspect]
     Indication: DRUG USE FOR UNKNOWN INDICATION
     Route: 065
  3. LASIX [Concomitant]
  4. SPIRONOLACTONE [Concomitant]
  5. METOLAZONE [Concomitant]
  6. COUMADIN [Concomitant]
  7. DIGOXIN [Concomitant]
  8. COREG [Concomitant]
  9. CAPTOPRIL [Concomitant]
  10. POTASSIUM [Concomitant]
  11. MINOCYCLINE [Concomitant]
  12. ZOLOFT [Concomitant]
  13. TRIZIVIR [Concomitant]
  14. WELLBUTRIN [Concomitant]
  15. SINGULAIR [Concomitant]
  16. VIREAD [Concomitant]
  17. ALBUTEROL [Concomitant]

REACTIONS (2)
  - CUSHING'S SYNDROME [None]
  - DRUG INTERACTION [None]
